FAERS Safety Report 16651355 (Version 2)
Quarter: 2019Q3

REPORT INFORMATION
  Report Type: Spontaneous
  Country: CA (occurrence: CA)
  Receive Date: 20190731
  Receipt Date: 20190806
  Transmission Date: 20191004
  Serious: Yes (Other)
  Sender: FDA-Public Use
  Company Number: CA-PFIZER INC-2019322703

PATIENT
  Age: 61 Year
  Sex: Female

DRUGS (36)
  1. MAGNESIUM SULFATE. [Suspect]
     Active Substance: MAGNESIUM SULFATE
     Dosage: 1 G, UNK (DURING THE FOLLOWING WEEK, SHE TOOK 2 SERIAL DOSES FOLLOWED BY 3 DAYS OFF)
     Route: 058
     Dates: start: 2017
  2. MAGNESIUM GLUCONICUM [Concomitant]
     Indication: BLOOD MAGNESIUM DECREASED
     Dosage: 1500 MG, 2X/DAY (1,500 MG/15 ML)
     Route: 048
     Dates: start: 2016
  3. ZINC. [Concomitant]
     Active Substance: ZINC
     Indication: MINERAL SUPPLEMENTATION
     Dosage: 50 MG, 1X/DAY
     Route: 048
     Dates: start: 20160830
  4. MAGNESIUM SULFATE. [Suspect]
     Active Substance: MAGNESIUM SULFATE
     Dosage: 2 G, UNK
     Route: 040
     Dates: start: 20170125
  5. MAGNESIUM SULFATE. [Suspect]
     Active Substance: MAGNESIUM SULFATE
     Dosage: 2 G, UNK
     Route: 040
     Dates: start: 20170524
  6. SODIUM CHLORIDE. [Concomitant]
     Active Substance: SODIUM CHLORIDE
     Dosage: 1 L, UNK (OVER 8-12 H OVERNIGHT)
     Route: 058
     Dates: start: 20161108
  7. SODIUM CHLORIDE. [Concomitant]
     Active Substance: SODIUM CHLORIDE
     Dosage: (I.E., 4 MMOL ELEMENTAL MG2+; 5 ML 200 MG/L MAGNESIUM SULFATE) TO HER 500 ML NORMAL SALINE INFUSI...
     Route: 058
     Dates: start: 20170719
  8. VITAMIN D [VITAMIN D NOS] [Concomitant]
     Active Substance: VITAMIN D NOS
     Indication: VITAMIN SUPPLEMENTATION
     Dosage: 2000 IU, 1X/DAY
     Route: 048
     Dates: start: 20160830
  9. METRONIDAZOLE. [Concomitant]
     Active Substance: METRONIDAZOLE
     Indication: ANTIBIOTIC PROPHYLAXIS
     Dosage: 500 MG, CYCLIC (B.I.D, 2 WEEKS ON AND 1 WEEK OFF)
     Dates: start: 2017
  10. PANTOPRAZOLE [Concomitant]
     Active Substance: PANTOPRAZOLE
     Dosage: 40 MG, 1X/DAY
     Dates: start: 2017
  11. MAGNESIUM SULFATE. [Suspect]
     Active Substance: MAGNESIUM SULFATE
     Dosage: (I.E., 4 MMOL ELEMENTAL MG2+; 5 ML 200 MG/L MAGNESIUM SULFATE) TO HER 500 ML NORMAL SALINE INFUSI...
     Route: 058
     Dates: start: 20170719
  12. MAGNESIUM SULFATE. [Suspect]
     Active Substance: MAGNESIUM SULFATE
     Dosage: 2 G, UNK
     Route: 040
     Dates: start: 20170302
  13. MAGNESIUM SULFATE. [Suspect]
     Active Substance: MAGNESIUM SULFATE
     Dosage: DURING THE FOLLOWING WEEK, SHE TOOK 2 SERIAL DOSES FOLLOWED BY 3 DAYS OFF
     Route: 058
  14. CODEINE CONTIN [Concomitant]
     Active Substance: CODEINE SULFATE
     Dosage: 100 MG, 2X/DAY
     Dates: start: 201611
  15. CALCIUM CARBONATE. [Concomitant]
     Active Substance: CALCIUM CARBONATE
     Dosage: 500 MG, 2X/DAY
     Route: 048
     Dates: start: 2016
  16. PSYLLIUM [PLANTAGO AFRA] [Concomitant]
     Active Substance: PLANTAGO AFRA SEED
     Dosage: 10 MG, AS NEEDED (B.I.D. P.R.N)
     Route: 048
     Dates: start: 20160830
  17. MAGNESIUM SULFATE. [Suspect]
     Active Substance: MAGNESIUM SULFATE
     Dosage: 2 G, UNK
     Route: 040
     Dates: start: 2016
  18. MAGNESIUM SULFATE. [Suspect]
     Active Substance: MAGNESIUM SULFATE
     Dosage: 2 G, UNK
     Route: 040
     Dates: start: 20170705
  19. MORPHINE [Concomitant]
     Active Substance: MORPHINE
     Indication: PAIN
     Dosage: 15 MG ORALLY EVERY 4 H AND 10 MG ORALLY EVERY 1 H (AS NECESSARY)
     Route: 048
     Dates: start: 20160830
  20. MORPHINE [Concomitant]
     Active Substance: MORPHINE
     Dosage: 15 MG ORALLY EVERY 4 H AND 10 MG ORALLY EVERY 1 H (AS NECESSARY)
     Route: 048
     Dates: start: 20160830
  21. PSYLLIUM [PLANTAGO AFRA] [Concomitant]
     Active Substance: PLANTAGO AFRA SEED
     Dosage: 4 MG, 4X/DAY
     Route: 048
     Dates: start: 201611
  22. MAGNESIUM GLUCONICUM [Concomitant]
     Dosage: 3000 MG (150 MG [6 MMOL] ORALLY T.I.D
     Dates: start: 20161122
  23. PANTOPRAZOLE [Concomitant]
     Active Substance: PANTOPRAZOLE
     Indication: GASTROINTESTINAL MOTILITY DISORDER
     Dosage: 40 MG, 2X/DAY
     Dates: start: 20170201
  24. LOPERAMIDE [Concomitant]
     Active Substance: LOPERAMIDE
     Dosage: 4 MG, 2X/DAY
     Route: 048
     Dates: start: 20160830
  25. LOPERAMIDE [Concomitant]
     Active Substance: LOPERAMIDE
     Dosage: 2-4 MG
     Route: 048
     Dates: start: 20160830
  26. MAGNESIUM SULFATE. [Suspect]
     Active Substance: MAGNESIUM SULFATE
     Dosage: 2 G, UNK
     Route: 040
     Dates: start: 20170224
  27. CALCIUM [Concomitant]
     Active Substance: CALCIUM
     Indication: MINERAL SUPPLEMENTATION
     Dosage: 1000 MG, 1X/DAY
     Route: 048
     Dates: start: 20160830
  28. MAGNESIUM SULFATE. [Suspect]
     Active Substance: MAGNESIUM SULFATE
     Indication: HYPOMAGNESAEMIA
     Dosage: 2 G, UNK
     Route: 040
     Dates: start: 20161006
  29. MAGNESIUM SULFATE. [Suspect]
     Active Substance: MAGNESIUM SULFATE
     Dosage: 2 G, UNK
     Route: 040
     Dates: start: 20170125
  30. MAGNESIUM SULFATE. [Suspect]
     Active Substance: MAGNESIUM SULFATE
     Dosage: 2 G, UNK
     Route: 040
     Dates: start: 20170327
  31. CIPROFLOXACIN. [Concomitant]
     Active Substance: CIPROFLOXACIN
     Indication: ANTIBIOTIC PROPHYLAXIS
     Dosage: 500 MG, CYCLIC (B.I.D, 2 WEEKS ON AND 1 WEEK OFF)
     Dates: start: 2017
  32. SELENIUM [Concomitant]
     Active Substance: SELENIUM
     Indication: SUPPLEMENTATION THERAPY
     Dosage: 50 MG, 1X/DAY
     Route: 048
     Dates: start: 20160830
  33. MITOMYCIN C [Concomitant]
     Active Substance: MITOMYCIN
     Indication: ANAL SQUAMOUS CELL CARCINOMA
     Dosage: UNK
     Dates: start: 20160627
  34. MAGNESIUM SULFATE. [Suspect]
     Active Substance: MAGNESIUM SULFATE
     Dosage: 2 G, UNK
     Route: 040
     Dates: start: 20170226
  35. FLUOROURACIL. [Concomitant]
     Active Substance: FLUOROURACIL
     Indication: ANAL SQUAMOUS CELL CARCINOMA
     Dosage: UNK
     Dates: start: 20160627
  36. LOPERAMIDE [Concomitant]
     Active Substance: LOPERAMIDE
     Dosage: UNK, 2X/DAY (2-4 MG)
     Route: 048
     Dates: start: 20160830

REACTIONS (4)
  - Off label use [Unknown]
  - Product use issue [Unknown]
  - Infusion site cellulitis [Unknown]
  - Infusion site pain [Unknown]

NARRATIVE: CASE EVENT DATE: 201707
